FAERS Safety Report 13589469 (Version 1)
Quarter: 2017Q2

REPORT INFORMATION
  Report Type: Other
  Country: GB (occurrence: GB)
  Receive Date: 20170529
  Receipt Date: 20170529
  Transmission Date: 20170830
  Serious: Yes (Other)
  Sender: FDA-Public Use
  Company Number: GB-HETERO LABS LTD-2021310

PATIENT
  Age: 47 Year
  Sex: Female

DRUGS (4)
  1. LACOSAMIDE. [Concomitant]
     Active Substance: LACOSAMIDE
     Route: 065
  2. LEVETIRACETAM. [Suspect]
     Active Substance: LEVETIRACETAM
     Indication: EPILEPSY
     Route: 065
  3. CLOBAZAM [Suspect]
     Active Substance: CLOBAZAM
     Route: 065
  4. LAMOTRIGINE. [Suspect]
     Active Substance: LAMOTRIGINE
     Route: 065

REACTIONS (3)
  - Cognitive disorder [Unknown]
  - Sedation [Unknown]
  - Dizziness [Unknown]
